FAERS Safety Report 14144798 (Version 1)
Quarter: 2017Q4

REPORT INFORMATION
  Report Type: Spontaneous
  Country: DE (occurrence: DE)
  Receive Date: 20171031
  Receipt Date: 20171031
  Transmission Date: 20180321
  Serious: Yes (Life-Threatening, Hospitalization, Other)
  Sender: FDA-Public Use
  Company Number: DE-LUPIN PHARMACEUTICALS INC.-2017-06256

PATIENT
  Age: 74 Year

DRUGS (2)
  1. POTASSIUM CHLORIDE. [Suspect]
     Active Substance: POTASSIUM CHLORIDE
     Indication: HYPOKALAEMIA
     Dosage: 7.45 % SOL. WITH A FLOW RATE OF 10 ML/H (800 MG)
     Route: 008
  2. ROPIVACAINE [Concomitant]
     Active Substance: ROPIVACAINE
     Indication: EPIDURAL ANALGESIA
     Dosage: UNK
     Route: 008

REACTIONS (8)
  - Loss of consciousness [Recovered/Resolved]
  - Incorrect route of drug administration [Unknown]
  - Respiratory depression [Unknown]
  - Stress cardiomyopathy [Unknown]
  - Spinal cord paralysis [Recovered/Resolved]
  - Pneumonia [Unknown]
  - Lung infiltration [Unknown]
  - Ileus [Unknown]
